FAERS Safety Report 10880110 (Version 4)
Quarter: 2015Q2

REPORT INFORMATION
  Report Type: Spontaneous
  Country: US (occurrence: US)
  Receive Date: 20150302
  Receipt Date: 20150504
  Transmission Date: 20150821
  Serious: Yes (Other)
  Sender: FDA-Public Use
  Company Number: US-PFIZER INC-2015070769

PATIENT
  Age: 52 Year
  Sex: Male
  Weight: 279 kg

DRUGS (9)
  1. HUMULIN N [Concomitant]
     Active Substance: INSULIN HUMAN
     Dosage: UNK UNK, AS NEEDED
  2. METFORMIN [Concomitant]
     Active Substance: METFORMIN HYDROCHLORIDE
     Dosage: 1500 MG, 1X/DAY
     Route: 048
  3. LYRICA [Suspect]
     Active Substance: PREGABALIN
     Indication: DIABETIC NEUROPATHY
     Dosage: 300 MG, 3X/DAY
     Dates: start: 201402
  4. GLIPIZIDE. [Concomitant]
     Active Substance: GLIPIZIDE
     Indication: DIABETES MELLITUS
     Dosage: 20 MG, 4X/DAY
     Route: 048
  5. PIOGLITAZONE [Concomitant]
     Active Substance: PIOGLITAZONE
     Indication: BLOOD GLUCOSE ABNORMAL
     Dosage: 15 MG, 1X/DAY
  6. LEVOTHYROXINE SODIUM. [Concomitant]
     Active Substance: LEVOTHYROXINE SODIUM
     Indication: HYPOTHYROIDISM
     Dosage: .1 MG, 1X/DAY
     Route: 048
  7. METFORMIN [Concomitant]
     Active Substance: METFORMIN HYDROCHLORIDE
     Indication: DIABETES MELLITUS
     Dosage: 450 MG,ONE IN THE MORNING AND 2 AT NIGHT
     Route: 048
  8. OXYCODONE [Concomitant]
     Active Substance: OXYCODONE
     Indication: ARTHRITIS
     Dosage: UNK UNK, 4X/DAY
  9. LYRICA [Suspect]
     Active Substance: PREGABALIN
     Dosage: 300 MG, 4X/DAY
     Dates: start: 2014

REACTIONS (7)
  - Intentional overdose [Not Recovered/Not Resolved]
  - Drug ineffective [Recovering/Resolving]
  - Weight increased [Not Recovered/Not Resolved]
  - Hypothyroidism [Unknown]
  - Fatigue [Unknown]
  - White blood cell count increased [Not Recovered/Not Resolved]
  - Hypoaesthesia [Unknown]

NARRATIVE: CASE EVENT DATE: 2014
